FAERS Safety Report 7578147-0 (Version None)
Quarter: 2011Q2

REPORT INFORMATION
  Report Type: 
  Country: None (occurrence: None)
  Receive Date: 20110628
  Receipt Date: 20110125
  Transmission Date: 20111010
  Serious: Yes (Hospitalization)
  Sender: FDA-Public Use
  Company Number: A0910404A

PATIENT
  Age: 59 Year
  Sex: Male

DRUGS (1)
  1. AVANDIA [Suspect]
     Indication: DIABETES MELLITUS
     Dosage: 4MG PER DAY
     Route: 048

REACTIONS (5)
  - TRANSIENT ISCHAEMIC ATTACK [None]
  - MUSCULOSKELETAL STIFFNESS [None]
  - CEREBROVASCULAR ACCIDENT [None]
  - POOR PERIPHERAL CIRCULATION [None]
  - FINGER AMPUTATION [None]
